FAERS Safety Report 21192265 (Version 1)
Quarter: 2022Q3

REPORT INFORMATION
  Report Type: Report from Study
  Country: FR (occurrence: FR)
  Receive Date: 20220809
  Receipt Date: 20220809
  Transmission Date: 20221027
  Serious: Yes (Other)
  Sender: FDA-Public Use
  Company Number: FR-GBT-015007

PATIENT
  Age: 43 Year
  Sex: Female

DRUGS (6)
  1. VOXELOTOR [Suspect]
     Active Substance: VOXELOTOR
     Indication: Product used for unknown indication
     Dates: start: 20220701
  2. VOXELOTOR [Suspect]
     Active Substance: VOXELOTOR
     Indication: Product used for unknown indication
     Dates: start: 20220702, end: 20220711
  3. PROGESTERONE [Concomitant]
     Active Substance: PROGESTERONE
  4. Sp?ciafoldine [Concomitant]
  5. EXJADE [Concomitant]
     Active Substance: DEFERASIROX
  6. SIKLOS [Concomitant]
     Active Substance: HYDROXYUREA

REACTIONS (7)
  - Rash erythematous [Not Recovered/Not Resolved]
  - Pruritus genital [Recovered/Resolved]
  - Therapy cessation [Unknown]
  - Off label use [Unknown]
  - Rash maculo-papular [Recovering/Resolving]
  - Oral herpes [Recovered/Resolved]
  - Vulvovaginal erythema [Unknown]

NARRATIVE: CASE EVENT DATE: 20220708
